FAERS Safety Report 10042258 (Version 3)
Quarter: 2014Q2

REPORT INFORMATION
  Report Type: Spontaneous
  Country: JP (occurrence: JP)
  Receive Date: 20140327
  Receipt Date: 20140422
  Transmission Date: 20141212
  Serious: Yes (Hospitalization, Other)
  Sender: FDA-Public Use
  Company Number: JP-BAYER-2014-019852

PATIENT
  Age: 39 Year
  Sex: Female
  Weight: 64.85 kg

DRUGS (2)
  1. MAGNEVIST [Suspect]
     Indication: HYSTEROSALPINGOGRAM
     Dosage: 10 ML, ONCE
     Route: 042
     Dates: start: 20140131, end: 20140131
  2. MAGNEVIST [Suspect]
     Indication: UTERINE LEIOMYOMA

REACTIONS (15)
  - Hypersensitivity [Recovering/Resolving]
  - Face oedema [Recovering/Resolving]
  - Malaise [Recovering/Resolving]
  - Nausea [Recovering/Resolving]
  - Drug eruption [Recovering/Resolving]
  - Pruritus [Recovering/Resolving]
  - Feeling hot [Recovering/Resolving]
  - Sensory disturbance [Recovering/Resolving]
  - Yawning [Recovering/Resolving]
  - Decreased appetite [Recovering/Resolving]
  - Gastrointestinal disorder [Recovering/Resolving]
  - Dyspnoea [Recovering/Resolving]
  - Dysphagia [Recovering/Resolving]
  - Supraventricular tachycardia [Recovering/Resolving]
  - Atrial fibrillation [Recovering/Resolving]
